FAERS Safety Report 17272374 (Version 1)
Quarter: 2020Q1

REPORT INFORMATION
  Report Type: Spontaneous
  Country: US (occurrence: US)
  Receive Date: 20200114
  Receipt Date: 20200114
  Transmission Date: 20200409
  Serious: Yes (Other)
  Sender: FDA-Public Use
  Company Number: None

PATIENT
  Age: 90 Year
  Sex: Female
  Weight: 45 kg

DRUGS (6)
  1. ESTRADIOL VAGINAL CREAM 0.01% [Suspect]
     Active Substance: ESTRADIOL
     Indication: ATROPHIC VULVOVAGINITIS
     Dosage: ?          QUANTITY:1 GRAM;OTHER FREQUENCY:TWICE WEEKLY;?
     Route: 067
     Dates: start: 20191011, end: 20191011
  2. AMLODIPINE [Concomitant]
     Active Substance: AMLODIPINE BESYLATE
  3. MULTIVITAMINS [Concomitant]
     Active Substance: VITAMINS
  4. ELIQUIS [Concomitant]
     Active Substance: APIXABAN
  5. LISINOPRIL. [Concomitant]
     Active Substance: LISINOPRIL
  6. CALCIUM 600MG [Concomitant]

REACTIONS (3)
  - Vulvovaginal discomfort [None]
  - Application site pain [None]
  - Manufacturing materials issue [None]

NARRATIVE: CASE EVENT DATE: 20191011
